FAERS Safety Report 14848125 (Version 1)
Quarter: 2018Q2

REPORT INFORMATION
  Report Type: Spontaneous
  Country: US (occurrence: US)
  Receive Date: 20180504
  Receipt Date: 20180504
  Transmission Date: 20180711
  Serious: No
  Sender: FDA-Public Use
  Company Number: US-GLAXOSMITHKLINE-US2018073875

PATIENT

DRUGS (4)
  1. TEA TREE OIL. [Suspect]
     Active Substance: TEA TREE OIL
     Indication: ORAL HERPES
     Dosage: UNK
  2. ABREVA [Suspect]
     Active Substance: DOCOSANOL
     Indication: ORAL HERPES
     Dosage: UNK, APPLIED ABREVA EVERY 3 HOURS
  3. OLIVE OIL [Suspect]
     Active Substance: OLIVE OIL
     Indication: ORAL HERPES
     Dosage: UNK
  4. LYSINE [Suspect]
     Active Substance: LYSINE
     Indication: ORAL HERPES
     Dosage: 2 DF, UNK

REACTIONS (1)
  - Potentiating drug interaction [Unknown]
